FAERS Safety Report 10015223 (Version 2)
Quarter: 2014Q2

REPORT INFORMATION
  Report Type: Spontaneous
  Country: US (occurrence: US)
  Receive Date: 20140317
  Receipt Date: 20140430
  Transmission Date: 20141212
  Serious: No
  Sender: FDA-Public Use
  Company Number: US-PFIZER INC-2014073491

PATIENT
  Age: 67 Year
  Sex: Female

DRUGS (1)
  1. INLYTA [Suspect]
     Indication: RENAL CANCER
     Dosage: 5 MG, 1 TABLET TWICE A DAY

REACTIONS (4)
  - Malaise [Unknown]
  - Disease progression [Unknown]
  - Renal cancer [Unknown]
  - Weight decreased [Unknown]
